FAERS Safety Report 6847821-3 (Version None)
Quarter: 2010Q3

REPORT INFORMATION
  Report Type: 
  Country: None (occurrence: None)
  Receive Date: 20100716
  Receipt Date: 20100707
  Transmission Date: 20110219
  Serious: Yes (Death, Other)
  Sender: FDA-Public Use
  Company Number: US-BAYER-201027604NA

PATIENT
  Age: 61 Year
  Sex: Male
  Weight: 78 kg

DRUGS (13)
  1. MAGNEVIST [Suspect]
     Indication: ANGIOGRAM
     Route: 042
     Dates: start: 20070207, end: 20070207
  2. MAGNEVIST [Suspect]
     Dosage: AS USED: 17 ML  UNIT DOSE: 17 ML
     Route: 042
     Dates: start: 20070210, end: 20070210
  3. OMNISCAN [Suspect]
     Indication: ANGIOGRAM
     Dosage: AS USED: 60 ML  UNIT DOSE: 60 ML
     Route: 042
     Dates: start: 20041105, end: 20041105
  4. OMNISCAN [Suspect]
     Route: 042
     Dates: start: 20041104, end: 20041104
  5. INSULIN [Concomitant]
  6. NEPHRO-VITE [Concomitant]
  7. AMARYL [Concomitant]
  8. ENALAPRIL MALEATE [Concomitant]
  9. CLONIDINE [Concomitant]
  10. MINOXIDIL [Concomitant]
  11. PHOSLO [Concomitant]
  12. EPOGEN/PROCRIT [Concomitant]
  13. ASPIRIN [Concomitant]

REACTIONS (16)
  - DRY SKIN [None]
  - GAIT DISTURBANCE [None]
  - JOINT RANGE OF MOTION DECREASED [None]
  - MOBILITY DECREASED [None]
  - NEPHROGENIC SYSTEMIC FIBROSIS [None]
  - NODULE ON EXTREMITY [None]
  - OEDEMA PERIPHERAL [None]
  - PAIN IN EXTREMITY [None]
  - RASH [None]
  - SCAB [None]
  - SKIN EXFOLIATION [None]
  - SKIN FIBROSIS [None]
  - SKIN HYPERPIGMENTATION [None]
  - SKIN HYPERTROPHY [None]
  - SKIN TIGHTNESS [None]
  - SKIN ULCER [None]
